FAERS Safety Report 6466260-0 (Version None)
Quarter: 2009Q4

REPORT INFORMATION
  Report Type: 
  Country: None (occurrence: None)
  Receive Date: 20091202
  Receipt Date: 20091124
  Transmission Date: 20100525
  Serious: Yes (Hospitalization)
  Sender: FDA-Public Use
  Company Number: PHEH2009US15401

PATIENT
  Sex: Male

DRUGS (8)
  1. EXJADE [Suspect]
     Indication: OESOPHAGEAL CARCINOMA
     Dosage: 1250 MG, DAILY
     Route: 048
     Dates: start: 20091021, end: 20091102
  2. EXJADE [Suspect]
     Indication: IRON OVERLOAD
  3. ZOCOR [Concomitant]
  4. POTASSIUM [Concomitant]
  5. PANCREASE MT [Concomitant]
  6. OMEPRAZOLE [Concomitant]
  7. MULTIVITAMIN ^LAPPE^ [Concomitant]
  8. ISOSORBIDE MONONITRATE [Concomitant]

REACTIONS (2)
  - NAUSEA [None]
  - THROMBOSIS [None]
